FAERS Safety Report 8409964-2 (Version None)
Quarter: 2012Q2

REPORT INFORMATION
  Report Type: 
  Country: None (occurrence: None)
  Receive Date: 20120605
  Receipt Date: 20120601
  Transmission Date: 20120825
  Serious: Yes (Hospitalization)
  Sender: FDA-Public Use
  Company Number: IT-BRISTOL-MYERS SQUIBB COMPANY-16583031

PATIENT
  Age: 34 Year
  Sex: Male

DRUGS (9)
  1. ATORVASTATIN CALCIUM [Concomitant]
  2. COUMADIN [Suspect]
     Indication: DEEP VEIN THROMBOSIS
     Dosage: INTERR 16APR12
     Route: 048
     Dates: start: 20040101
  3. CELLCEPT [Concomitant]
     Indication: SYSTEMIC LUPUS ERYTHEMATOSUS
  4. CALCIUM D3 SANDOZ [Concomitant]
  5. VALPRESSION [Concomitant]
  6. ROCALTROL [Concomitant]
  7. OMEPRAZOLE [Concomitant]
  8. LASIX [Concomitant]
  9. PREDNISONE TAB [Concomitant]
     Route: 048
     Dates: start: 20040101

REACTIONS (3)
  - ANAEMIA [None]
  - ABDOMINAL INJURY [None]
  - RENAL HAEMATOMA [None]
